FAERS Safety Report 8027700-9 (Version None)
Quarter: 2012Q1

REPORT INFORMATION
  Report Type: 
  Country: None (occurrence: None)
  Receive Date: 20120106
  Receipt Date: 20110110
  Transmission Date: 20120608
  Serious: Yes (Hospitalization, Other)
  Sender: FDA-Public Use
  Company Number: US-BAYER-201020669NA

PATIENT
  Age: 33 Year
  Sex: Female
  Weight: 111 kg

DRUGS (4)
  1. YAZ [Suspect]
     Indication: MENSTRUATION IRREGULAR
  2. YAZ [Suspect]
     Indication: POLYCYSTIC OVARIES
     Route: 048
     Dates: start: 20080301, end: 20080401
  3. ACETAMINOPHEN [Concomitant]
  4. ROCEPHIN [Concomitant]

REACTIONS (14)
  - ERYTHEMA [None]
  - THROMBOSIS [None]
  - GAIT DISTURBANCE [None]
  - HYPOAESTHESIA [None]
  - CELLULITIS [None]
  - PHLEBITIS [None]
  - PAIN IN EXTREMITY [None]
  - PARAESTHESIA [None]
  - OEDEMA PERIPHERAL [None]
  - MOBILITY DECREASED [None]
  - DEEP VEIN THROMBOSIS [None]
  - COAGULOPATHY [None]
  - ARTHRALGIA [None]
  - INSOMNIA [None]
